FAERS Safety Report 8372078 (Version 4)
Quarter: 2012Q4

REPORT INFORMATION
  Report Type: 
  Country: US (occurrence: US)
  Receive Date: 20120131
  Receipt Date: 20121206
  Transmission Date: 20130627
  Serious: No
  Sender: FDA-Public Use
  Company Number: US-PFIZER INC-2012021973

PATIENT
  Sex: Female

DRUGS (1)
  1. TIKOSYN [Suspect]
     Dosage: 0.125 mg, UNK

REACTIONS (4)
  - Headache [Unknown]
  - Stress [Unknown]
  - Dizziness [Unknown]
  - Feeling cold [Unknown]
